FAERS Safety Report 17930298 (Version 1)
Quarter: 2020Q2

REPORT INFORMATION
  Report Type: Report from Study
  Country: BR (occurrence: BR)
  Receive Date: 20200623
  Receipt Date: 20200623
  Transmission Date: 20200714
  Serious: Yes (Other)
  Sender: FDA-Public Use
  Company Number: BR-UCBSA-2020023952

PATIENT
  Age: 80 Year
  Sex: Female
  Weight: 83 kg

DRUGS (3)
  1. SINVASTATINA [Concomitant]
     Active Substance: SIMVASTATIN
     Indication: BLOOD CHOLESTEROL
     Dosage: 20 MILLIGRAM, UNK
     Route: 048
     Dates: start: 2008
  2. CERTOLIZUMAB PEGOL RA [Suspect]
     Active Substance: CERTOLIZUMAB PEGOL
     Indication: RHEUMATOID ARTHRITIS
     Dosage: UNK
     Route: 058
     Dates: start: 20200422, end: 20200604
  3. BACITRACIN;NEOMYCIN SULFATE [Concomitant]
     Indication: SKIN EXFOLIATION
     Dosage: FOR ONE MONTH
     Route: 061

REACTIONS (5)
  - Weight increased [Not Recovered/Not Resolved]
  - Dry skin [Recovered/Resolved]
  - Platelet count decreased [Recovered/Resolved]
  - Skin wrinkling [Recovered/Resolved]
  - Skin exfoliation [Recovered/Resolved]

NARRATIVE: CASE EVENT DATE: 2020
